FAERS Safety Report 6368682-5 (Version None)
Quarter: 2009Q3

REPORT INFORMATION
  Report Type: 
  Country: None (occurrence: None)
  Receive Date: 20090922
  Receipt Date: 20090911
  Transmission Date: 20100115
  Serious: Yes (Hospitalization)
  Sender: FDA-Public Use
  Company Number: US-AVENTIS-200918152US

PATIENT
  Sex: Male

DRUGS (5)
  1. LANTUS [Suspect]
     Route: 058
     Dates: end: 20090501
  2. LANTUS [Suspect]
     Route: 058
     Dates: start: 20090801
  3. NOVOLOG [Concomitant]
     Dosage: DOSE: PER SLIDING SCALE WITH MEALS
  4. ENALAPRIL MALEATE [Concomitant]
     Dosage: DOSE: 2 20 MG TABS DAILY
  5. ASPIRIN [Concomitant]
     Dosage: DOSE: 1 TAB

REACTIONS (8)
  - ABDOMINAL DISTENSION [None]
  - ABDOMINAL PAIN UPPER [None]
  - BLOOD GLUCOSE INCREASED [None]
  - BLOOD PRESSURE INCREASED [None]
  - CONSTIPATION [None]
  - DIABETIC KETOACIDOSIS [None]
  - DIARRHOEA [None]
  - MYOCARDIAL INFARCTION [None]
